FAERS Safety Report 5676230-8 (Version None)
Quarter: 2008Q1

REPORT INFORMATION
  Report Type: 
  Country: None (occurrence: None)
  Receive Date: 20080321
  Receipt Date: 20080311
  Transmission Date: 20080703
  Serious: Yes (Congenital Anomaly)
  Sender: FDA-Public Use
  Company Number: SE-ELI_LILLY_AND_COMPANY-SE200803002433

PATIENT
  Sex: Female

DRUGS (6)
  1. STRATTERA [Suspect]
     Dosage: 50 MG, UNK
     Route: 064
     Dates: end: 20071124
  2. EFFEXOR [Concomitant]
     Indication: DEPRESSION
  3. OMEPRAZOLE [Concomitant]
     Indication: GASTRITIS
     Dosage: 20 MG, DAILY (1/D)
     Route: 064
  4. FOLACIN [Concomitant]
     Dosage: 1 D/F, DAILY (1/D)
     Route: 064
  5. BEHEPAN [Concomitant]
     Dosage: 1 D/F, DAILY (1/D)
     Route: 064
  6. OXASCAND [Concomitant]
     Indication: NEUROSIS
     Dosage: 15 MG, AS NEEDED
     Route: 064

REACTIONS (3)
  - CONGENITAL FOOT MALFORMATION [None]
  - DRUG EXPOSURE DURING PREGNANCY [None]
  - PREMATURE BABY [None]
